FAERS Safety Report 17568709 (Version 1)
Quarter: 2020Q1

REPORT INFORMATION
  Report Type: Spontaneous
  Country: US (occurrence: US)
  Receive Date: 20200321
  Receipt Date: 20200321
  Transmission Date: 20200409
  Serious: No
  Sender: FDA-Public Use
  Company Number: US-DRREDDYS-USA/USA/20/0120513

PATIENT
  Age: 15 Year

DRUGS (1)
  1. ZENATANE [Suspect]
     Active Substance: ISOTRETINOIN
     Indication: PRODUCT USED FOR UNKNOWN INDICATION
     Dosage: RMA ISSUE DATE 10/9/2019 3:57:07 PM, RMA ISSUE DATE 11/6/2019 9:44:17 AM, RMA ISSUE DATE 10/9/2019 3
     Route: 048

REACTIONS (1)
  - Therapy cessation [Unknown]
